FAERS Safety Report 7169748-2 (Version None)
Quarter: 2010Q4

REPORT INFORMATION
  Report Type: 
  Country: None (occurrence: None)
  Receive Date: 20101217
  Receipt Date: 20091110
  Transmission Date: 20110411
  Serious: No
  Sender: FDA-Public Use
  Company Number: A0835531A

PATIENT
  Age: 77 Year
  Sex: Male

DRUGS (8)
  1. SORIATANE [Suspect]
     Indication: SKIN CANCER
     Dosage: 10MG SEE DOSAGE TEXT
     Route: 048
     Dates: start: 20070601
  2. ASPIRIN [Concomitant]
     Dosage: 81MG PER DAY
     Route: 048
  3. EXFORGE [Concomitant]
     Dosage: .5TAB PER DAY
     Route: 048
  4. PROPAFENONE HYDROCHLORIDE [Concomitant]
     Dosage: 675MG PER DAY
     Route: 048
  5. SIMVASTATIN [Concomitant]
     Indication: BLOOD CHOLESTEROL INCREASED
     Dosage: .5TAB PER DAY
     Route: 048
  6. SPIRONOLACTONE [Concomitant]
     Dosage: .5TAB PER DAY
     Route: 048
  7. CALTRATE 600 + D [Concomitant]
     Indication: OSTEOPOROSIS
     Dosage: 2TAB PER DAY
     Route: 048
  8. ALENDRONATE [Concomitant]
     Indication: OSTEOPOROSIS
     Dosage: 70MG WEEKLY
     Route: 048

REACTIONS (2)
  - CONSTIPATION [None]
  - OFF LABEL USE [None]
